FAERS Safety Report 7588519-6 (Version None)
Quarter: 2011Q3

REPORT INFORMATION
  Report Type: 
  Country: None (occurrence: None)
  Receive Date: 20110705
  Receipt Date: 20110628
  Transmission Date: 20111222
  Serious: Yes (Other)
  Sender: FDA-Public Use
  Company Number: FR-PFIZER INC-2011143718

PATIENT
  Age: 61 Year
  Sex: Female

DRUGS (2)
  1. CADUET [Suspect]
     Indication: HYPERCHOLESTEROLAEMIA
  2. CADUET [Suspect]
     Indication: HYPERTENSION
     Dosage: 1 DF, 1X/DAY

REACTIONS (1)
  - HYPOTHYROIDISM [None]
